FAERS Safety Report 9128781 (Version 1)
Quarter: 2013Q1

REPORT INFORMATION
  Report Type: Spontaneous
  Country: US (occurrence: US)
  Receive Date: 20130228
  Receipt Date: 20130228
  Transmission Date: 20140127
  Serious: No
  Sender: FDA-Public Use
  Company Number: US-009507513-1302USA011191

PATIENT
  Sex: Female

DRUGS (8)
  1. ASMANEX TWISTHALER [Suspect]
     Indication: ASTHMA
     Dosage: 2 PUFFS, HS
     Route: 055
     Dates: start: 201301
  2. ASMANEX TWISTHALER [Suspect]
     Dosage: 2 PUFFS, HS
     Route: 055
     Dates: start: 2013
  3. NEXIUM [Concomitant]
     Route: 048
  4. LIPITOR [Concomitant]
  5. DICLOFENAC [Concomitant]
  6. CYCLOBENZAPRINE HYDROCHLORIDE [Concomitant]
  7. HYDROCODONE [Concomitant]
  8. ACETAMINOPHEN [Concomitant]

REACTIONS (2)
  - Drug ineffective [Unknown]
  - Product quality issue [Unknown]
